FAERS Safety Report 18170498 (Version 1)
Quarter: 2020Q3

REPORT INFORMATION
  Report Type: Spontaneous
  Country: DK (occurrence: DK)
  Receive Date: 20200819
  Receipt Date: 20200819
  Transmission Date: 20201103
  Serious: Yes (Other)
  Sender: FDA-Public Use
  Company Number: DK-PFIZER INC-2020318985

PATIENT
  Age: 81 Year
  Sex: Female

DRUGS (3)
  1. CONTALGIN [Concomitant]
     Active Substance: MORPHINE SULFATE
     Dosage: 10 MG, 3X/DAY
  2. DOLTARD [Concomitant]
     Dosage: 10 MG, 3X/DAY
  3. LYRICA [Suspect]
     Active Substance: PREGABALIN
     Indication: PAIN
     Dosage: 300 MG, 2?3 X DAY

REACTIONS (7)
  - Atrial fibrillation [Unknown]
  - Overdose [Unknown]
  - Asthenia [Unknown]
  - Decreased appetite [Unknown]
  - Malaise [Unknown]
  - Peripheral swelling [Unknown]
  - Withdrawal syndrome [Unknown]
